FAERS Safety Report 9869734 (Version 1)
Quarter: 2014Q1

REPORT INFORMATION
  Report Type: Spontaneous
  Country: US (occurrence: None)
  Receive Date: 20140130
  Receipt Date: 20140130
  Transmission Date: 20141002
  Serious: Yes (Other)
  Sender: FDA-Public Use
  Company Number: US-JNJFOC-20140112319

PATIENT
  Age: 71 Year
  Sex: Female

DRUGS (2)
  1. DACOGEN [Suspect]
     Indication: PRODUCT USED FOR UNKNOWN INDICATION
     Route: 042
  2. SAPACITABINE [Concomitant]

REACTIONS (2)
  - Anal fistula [None]
  - Rectal abscess [None]
